FAERS Safety Report 22542050 (Version 1)
Quarter: 2023Q2

REPORT INFORMATION
  Report Type: Spontaneous
  Country: CN (occurrence: CN)
  Receive Date: 20230609
  Receipt Date: 20230609
  Transmission Date: 20230721
  Serious: Yes (Hospitalization)
  Sender: FDA-Public Use
  Company Number: CN-Merck Healthcare KGaA-9406179

PATIENT
  Age: 64 Year
  Sex: Male

DRUGS (5)
  1. ERBITUX [Suspect]
     Active Substance: CETUXIMAB
     Indication: Squamous cell carcinoma of the tongue
     Dosage: 600 MG, UNKNOWN
     Route: 041
     Dates: start: 20230427, end: 20230427
  2. TORIPALIMAB [Suspect]
     Active Substance: TORIPALIMAB
     Indication: Squamous cell carcinoma of the tongue
     Dosage: 240 MG, UNKNOWN
     Route: 041
     Dates: start: 20230206, end: 20230306
  3. TORIPALIMAB [Suspect]
     Active Substance: TORIPALIMAB
     Dosage: 240 MG, DAILY
     Route: 041
     Dates: start: 20230427, end: 20230427
  4. CATEQUENTINIB DIHYDROCHLORIDE [Suspect]
     Active Substance: CATEQUENTINIB DIHYDROCHLORIDE
     Indication: Squamous cell carcinoma of the tongue
     Dosage: 8 MG, DAILY
     Route: 048
     Dates: start: 20230129
  5. CATEQUENTINIB DIHYDROCHLORIDE [Suspect]
     Active Substance: CATEQUENTINIB DIHYDROCHLORIDE
     Dosage: 10 MG, DAILY
     Route: 048
     Dates: start: 20230427, end: 20230511

REACTIONS (1)
  - Myelosuppression [Recovering/Resolving]

NARRATIVE: CASE EVENT DATE: 20230529
